FAERS Safety Report 13260717 (Version 1)
Quarter: 2017Q1

REPORT INFORMATION
  Report Type: Spontaneous
  Country: US (occurrence: US)
  Receive Date: 20170221
  Receipt Date: 20170221
  Transmission Date: 20170428
  Serious: No
  Sender: FDA-Public Use
  Company Number: None

PATIENT
  Age: 60 Year
  Sex: Male
  Weight: 83.7 kg

DRUGS (1)
  1. DALBAVANCIN. [Suspect]
     Active Substance: DALBAVANCIN
     Indication: CELLULITIS
     Dosage: ?          OTHER FREQUENCY:TIMES 1 DOSE;?
     Route: 042

REACTIONS (5)
  - Peripheral swelling [None]
  - Oedema peripheral [None]
  - Rash [None]
  - Chills [None]
  - Vomiting [None]

NARRATIVE: CASE EVENT DATE: 20170214
